FAERS Safety Report 14252556 (Version 2)
Quarter: 2017Q4

REPORT INFORMATION
  Report Type: Report from Study
  Country: US (occurrence: US)
  Receive Date: 20171205
  Receipt Date: 20171215
  Transmission Date: 20180321
  Serious: Yes (Other)
  Sender: FDA-Public Use
  Company Number: US-BAUSCH-BL-2017-032638

PATIENT
  Sex: Male

DRUGS (23)
  1. FLU VACCINE HIGH DOSE 65+ PF [Concomitant]
     Indication: IMMUNISATION
     Dates: start: 20141121
  2. FLU VACCINE QUADRLVALENT PF [Concomitant]
     Indication: IMMUNISATION
     Dates: start: 20151006
  3. FLU VACCINE QUADRLVALENT PF [Concomitant]
     Dates: start: 20170919
  4. INFLUENZA TIV (IM) PF [Concomitant]
     Indication: IMMUNISATION
     Dates: start: 20121101
  5. PROVENTIL HFA [Suspect]
     Active Substance: ALBUTEROL SULFATE
     Indication: PRODUCT USED FOR UNKNOWN INDICATION
     Dosage: 90 BASE
     Route: 065
  6. FOSAMAX [Suspect]
     Active Substance: ALENDRONATE SODIUM
     Indication: PRODUCT USED FOR UNKNOWN INDICATION
     Route: 065
  7. BESIVANCE [Suspect]
     Active Substance: BESIFLOXACIN
     Indication: PRODUCT USED FOR UNKNOWN INDICATION
     Route: 065
  8. PRILOSEC [Suspect]
     Active Substance: OMEPRAZOLE MAGNESIUM
     Indication: PRODUCT USED FOR UNKNOWN INDICATION
     Route: 065
  9. PENLAC [Suspect]
     Active Substance: CICLOPIROX
     Indication: PRODUCT USED FOR UNKNOWN INDICATION
     Route: 065
  10. ZANTAC [Suspect]
     Active Substance: RANITIDINE HYDROCHLORIDE
     Indication: PRODUCT USED FOR UNKNOWN INDICATION
     Route: 065
  11. FLU VACCINE QUADRLVALENT PF [Concomitant]
     Dates: start: 20160906
  12. COLAZAL [Suspect]
     Active Substance: BALSALAZIDE DISODIUM
     Indication: COLITIS ULCERATIVE
     Route: 065
     Dates: start: 2016
  13. VENTOLIN HFA [Suspect]
     Active Substance: ALBUTEROL SULFATE
     Indication: PRODUCT USED FOR UNKNOWN INDICATION
     Dosage: AIR CLASSIFIER TECHNOLOGY INHALER
     Route: 065
  14. PNEUMOCOCCAL POLYSACCHARIDE 23 [Concomitant]
     Indication: IMMUNISATION
     Dates: start: 20131001
  15. TDAP [Concomitant]
     Active Substance: TETANUS TOXOID, REDUCED DIPHTHERIA TOXOID AND ACELLULAR PERTUSSIS VACCINE ADSORBED, TDAP
     Indication: IMMUNISATION
     Dates: start: 20130828
  16. XIFAXAN [Suspect]
     Active Substance: RIFAXIMIN
     Indication: HEPATIC ENCEPHALOPATHY
     Route: 065
     Dates: start: 2015
  17. VITAMIN D3 [Suspect]
     Active Substance: CHOLECALCIFEROL
     Indication: PRODUCT USED FOR UNKNOWN INDICATION
     Route: 048
  18. VOLTAREN [Suspect]
     Active Substance: DICLOFENAC SODIUM
     Indication: PRODUCT USED FOR UNKNOWN INDICATION
     Dosage: OPHTHALMIC SOLUTION
     Route: 065
  19. LIALDA [Suspect]
     Active Substance: MESALAMINE
     Indication: PRODUCT USED FOR UNKNOWN INDICATION
     Route: 065
  20. PNEUMOCOCCAL CONJUGATE 13-VALEANT [Concomitant]
     Indication: IMMUNISATION
     Dates: start: 20151006
  21. MULTIPLE VITAMIN [Suspect]
     Active Substance: VITAMINS
     Indication: PRODUCT USED FOR UNKNOWN INDICATION
     Route: 048
  22. LACTULOSE. [Concomitant]
     Active Substance: LACTULOSE
     Indication: PRODUCT USED FOR UNKNOWN INDICATION
  23. INFLUENZA TIV (IM) PF [Concomitant]
     Dates: start: 20131001

REACTIONS (29)
  - Hepatic encephalopathy [Unknown]
  - Oedema [Unknown]
  - Hepatic enzyme increased [Unknown]
  - Osteopenia [Unknown]
  - Glycosylated haemoglobin increased [Unknown]
  - Ammonia increased [Unknown]
  - Cataract [Unknown]
  - Expired product administered [Unknown]
  - Cholangitis sclerosing [Unknown]
  - Osteoarthritis [Unknown]
  - Benign prostatic hyperplasia [Unknown]
  - Pain in extremity [Unknown]
  - Pneumonia bacterial [Unknown]
  - Hyperlipidaemia [Unknown]
  - Impaired fasting glucose [Unknown]
  - Colitis ulcerative [Unknown]
  - Bacterial sepsis [Unknown]
  - Liver disorder [Unknown]
  - Gastrooesophageal reflux disease [Unknown]
  - Weight decreased [Unknown]
  - Nausea [Unknown]
  - Diarrhoea [Unknown]
  - Chest pain [Unknown]
  - Intervertebral disc disorder [Unknown]
  - Malnutrition [Unknown]
  - Gastrointestinal disorder [Unknown]
  - Cervical spinal stenosis [Unknown]
  - Memory impairment [Unknown]
  - Asthenia [Unknown]
